FAERS Safety Report 24254389 (Version 2)
Quarter: 2024Q3

REPORT INFORMATION
  Report Type: Spontaneous
  Country: ES (occurrence: ES)
  Receive Date: 20240827
  Receipt Date: 20240911
  Transmission Date: 20241017
  Serious: Yes (Life-Threatening, Hospitalization)
  Sender: ACCORD
  Company Number: ES-Accord-442094

PATIENT
  Age: 72 Year
  Sex: Female
  Weight: 66.5 kg

DRUGS (6)
  1. ETOPOSIDE [Suspect]
     Active Substance: ETOPOSIDE
     Indication: Small cell lung cancer limited stage
     Route: 042
     Dates: start: 20240723, end: 20240725
  2. CARBOPLATIN [Suspect]
     Active Substance: CARBOPLATIN
     Indication: Small cell lung cancer limited stage
     Route: 042
     Dates: start: 20240723, end: 20240723
  3. FUROSEMIDE [Concomitant]
     Active Substance: FUROSEMIDE
     Indication: Hyponatraemia
     Dosage: STRENGTH: 20MG, DAILY
     Route: 048
     Dates: start: 20240724
  4. PREGABALIN [Concomitant]
     Active Substance: PREGABALIN
     Indication: Sciatica
     Dosage: STRENGTH: 25MG, THREE TIMES A DAY (TID)
     Route: 048
     Dates: start: 20240725
  5. LOPERAMIDE [Concomitant]
     Active Substance: LOPERAMIDE
     Indication: Diarrhoea
     Dosage: STRENGTH: 2MG, AS NEEDED (PRN)
     Route: 048
     Dates: start: 20240729
  6. SODIUM CHLORIDE [Concomitant]
     Active Substance: SODIUM CHLORIDE
     Indication: Hyponatraemia
     Dosage: STRENGTH: 500ML, DAILY
     Route: 042
     Dates: start: 20240726, end: 20240728

REACTIONS (3)
  - Neutropenia [Unknown]
  - Febrile neutropenia [Recovered/Resolved]
  - Hyponatraemia [Unknown]

NARRATIVE: CASE EVENT DATE: 20240731
